FAERS Safety Report 7743048-1 (Version None)
Quarter: 2011Q3

REPORT INFORMATION
  Report Type: 
  Country: None (occurrence: None)
  Receive Date: 20110908
  Receipt Date: 20110908
  Transmission Date: 20111222
  Serious: Yes (Disabling)
  Sender: FDA-Public Use
  Company Number: None

PATIENT
  Sex: Female
  Weight: 53.0709 kg

DRUGS (1)
  1. SIMVASTATIN [Suspect]
     Indication: BLOOD CHOLESTEROL INCREASED
     Dosage: 40MG ONE A DAY
     Dates: start: 20110401, end: 20110701

REACTIONS (4)
  - MYALGIA [None]
  - MALAISE [None]
  - TENDERNESS [None]
  - FATIGUE [None]
